FAERS Safety Report 7399809-4 (Version None)
Quarter: 2011Q2

REPORT INFORMATION
  Report Type: 
  Country: None (occurrence: None)
  Receive Date: 20110407
  Receipt Date: 20110323
  Transmission Date: 20111010
  Serious: No
  Sender: FDA-Public Use
  Company Number: JP-ROCHE-769165

PATIENT
  Age: 39 Year

DRUGS (1)
  1. TAMIFLU [Suspect]
     Dosage: DRUG: TAMIFLU CAPSULE
     Route: 048
     Dates: start: 20110301, end: 20110301

REACTIONS (1)
  - ACCIDENTAL OVERDOSE [None]
